FAERS Safety Report 13314272 (Version 2)
Quarter: 2017Q1

REPORT INFORMATION
  Report Type: Report from Study
  Country: US (occurrence: US)
  Receive Date: 20170309
  Receipt Date: 20170317
  Transmission Date: 20170428
  Serious: Yes (Death)
  Sender: FDA-Public Use
  Company Number: US-ASTRAZENECA-2017SE24687

PATIENT
  Age: 26379 Day
  Sex: Male
  Weight: 74.8 kg

DRUGS (9)
  1. GLYCOPYRRONIUM + FORMOTEROL FUMARATE INHALATION AEROSOL (PEARL) [Suspect]
     Active Substance: GLYCOPYRRONIUM\FORMOTEROL FUMARATE
     Indication: CHRONIC OBSTRUCTIVE PULMONARY DISEASE
     Dosage: 14.4/9.6 ???G EX-ACTUATOR, BID
     Route: 055
     Dates: start: 20170214, end: 20170303
  2. SPIRIVA [Concomitant]
     Active Substance: TIOTROPIUM BROMIDE MONOHYDRATE
     Indication: CHRONIC OBSTRUCTIVE PULMONARY DISEASE
     Route: 055
     Dates: end: 20170119
  3. LOSARTAN. [Concomitant]
     Active Substance: LOSARTAN
     Indication: HYPERTENSION
     Dosage: ONGOING
     Route: 048
     Dates: start: 2004
  4. VENTOLIN 90 MCG [Concomitant]
     Indication: CHRONIC OBSTRUCTIVE PULMONARY DISEASE
     Dosage: AS NEEDED
     Route: 055
     Dates: start: 2009, end: 20170119
  5. ASPIRIN. [Concomitant]
     Active Substance: ASPIRIN
     Indication: CARDIOVASCULAR EVENT PROPHYLAXIS
     Dosage: ONGOING
     Route: 048
     Dates: start: 2000
  6. FUROSEMIDE. [Concomitant]
     Active Substance: FUROSEMIDE
     Indication: CARDIAC FAILURE CONGESTIVE
     Dosage: ONGOING
     Route: 048
     Dates: start: 2010
  7. ADVAIR DISKUS 250/50 [Concomitant]
     Indication: CHRONIC OBSTRUCTIVE PULMONARY DISEASE
     Route: 055
     Dates: start: 2009, end: 20170119
  8. COREG [Concomitant]
     Active Substance: CARVEDILOL
     Indication: CARDIAC FAILURE CONGESTIVE
     Dosage: ONGOING
     Route: 048
     Dates: start: 2010
  9. VENTOLIN HFA [Concomitant]
     Active Substance: ALBUTEROL SULFATE
     Indication: CHRONIC OBSTRUCTIVE PULMONARY DISEASE
     Dosage: AS NEEDED, ONGOING
     Route: 055
     Dates: start: 20170119

REACTIONS (1)
  - Cardiac arrest [Fatal]

NARRATIVE: CASE EVENT DATE: 20170303
